FAERS Safety Report 5644325-0 (Version None)
Quarter: 2008Q1

REPORT INFORMATION
  Report Type: 
  Country: None (occurrence: None)
  Receive Date: 20080229
  Receipt Date: 20080222
  Transmission Date: 20080703
  Serious: Yes (Hospitalization, Other)
  Sender: FDA-Public Use
  Company Number: PHEH2006US10887

PATIENT
  Age: 46 Year
  Sex: Female
  Weight: 77.097 kg

DRUGS (10)
  1. ZOMETA [Suspect]
     Indication: METASTASES TO BONE
     Dosage: 4MG Q4WK
     Dates: start: 20030425, end: 20060401
  2. AREDIA [Suspect]
  3. ZOLADEX [Concomitant]
     Indication: METASTASES TO BONE
     Dosage: 3.6-10.8MG Q3MO
     Route: 058
     Dates: start: 20030425
  4. XELODA [Concomitant]
     Indication: BREAST CANCER
     Dates: start: 20030721
  5. HERCEPTIN [Concomitant]
     Indication: BREAST CANCER
     Dosage: 55MG UNK
     Route: 042
     Dates: start: 20031016
  6. FEMARA [Concomitant]
     Indication: BREAST CANCER
     Dosage: 2.5MG QD
     Route: 048
     Dates: start: 20031121
  7. PROCRIT [Concomitant]
     Indication: ANAEMIA
     Dosage: 40,000 UNITS WK FOR 4 WKS
     Route: 058
     Dates: start: 20040212
  8. NAVELBINE [Concomitant]
     Indication: BREAST CANCER
     Dosage: UNK WKLY X4WK
     Route: 042
     Dates: start: 20031001
  9. CHEMOTHERAPEUTICS NOS [Concomitant]
     Indication: BREAST CANCER
  10. TAMOXIFEN [Concomitant]

REACTIONS (15)
  - ANXIETY [None]
  - ARTHRALGIA [None]
  - BONE DISORDER [None]
  - BONE PAIN [None]
  - ENDODONTIC PROCEDURE [None]
  - HIP ARTHROPLASTY [None]
  - INJURY [None]
  - LUNG NEOPLASM [None]
  - METASTATIC NEOPLASM [None]
  - NUCLEAR MAGNETIC RESONANCE IMAGING ABNORMAL [None]
  - OSTEONECROSIS [None]
  - PAIN [None]
  - PAIN IN JAW [None]
  - TOOTH DISORDER [None]
  - TOOTH EXTRACTION [None]
